FAERS Safety Report 22083180 (Version 1)
Quarter: 2023Q1

REPORT INFORMATION
  Report Type: Spontaneous
  Country: IT (occurrence: IT)
  Receive Date: 20230310
  Receipt Date: 20230310
  Transmission Date: 20230417
  Serious: Yes (Death, Hospitalization)
  Sender: FDA-Public Use
  Company Number: None

PATIENT
  Age: 79 Year
  Sex: Female

DRUGS (13)
  1. METHOTREXATE [Suspect]
     Active Substance: METHOTREXATE
     Indication: Rheumatoid arthritis
     Dosage: CP 2.5 MG PO. 2 CP AT 8 HOURS
     Dates: start: 20221229, end: 20230204
  2. Folina [Concomitant]
     Dosage: 5 MG: 1 CP PER WEEK.
  3. FOSTER [Concomitant]
     Active Substance: BECLOMETHASONE\FORMOTEROL
     Dosage: HOME THERAPY
  4. FUROSEMIDE [Concomitant]
     Active Substance: FUROSEMIDE
     Dosage: HOME THERAPY
     Dates: end: 20230204
  5. CHOLECALCIFEROL [Concomitant]
     Active Substance: CHOLECALCIFEROL
     Dosage: HOME THERAPY.
  6. TOFACITINIB [Concomitant]
     Active Substance: TOFACITINIB
     Indication: Rheumatoid arthritis
     Dosage: 5 MG - 1 CP AT 8 HOURS AND 1 CP AT 20 HOURS
  7. NEBIVOLOL [Concomitant]
     Active Substance: NEBIVOLOL
     Dosage: HOME THERAPY
  8. PREDNISONE [Concomitant]
     Active Substance: PREDNISONE
     Indication: Rheumatoid arthritis
     Dosage: 2 MG - 1 CP DAILY. HOME THERAPY
  9. MEDROL [Concomitant]
     Active Substance: METHYLPREDNISOLONE
  10. LANSOPRAZOLE [Concomitant]
     Active Substance: LANSOPRAZOLE
  11. TAVOR [Concomitant]
  12. PALEXIA [Concomitant]
     Active Substance: TAPENTADOL HYDROCHLORIDE
  13. MEDROL [Concomitant]
     Active Substance: METHYLPREDNISOLONE
     Indication: Rheumatoid arthritis
     Dosage: 4 MG - 1/2 CP AT 8.00 HOURS

REACTIONS (11)
  - Septic shock [Fatal]
  - Pyrexia [Fatal]
  - Rectal haemorrhage [Fatal]
  - Medication error [Fatal]
  - Pancytopenia [Fatal]
  - Pneumonitis [Fatal]
  - Gastrointestinal inflammation [Fatal]
  - Jaundice [Fatal]
  - Diarrhoea [Fatal]
  - Hepatorenal failure [Fatal]
  - Haemoptysis [Fatal]

NARRATIVE: CASE EVENT DATE: 20221229
